FAERS Safety Report 8550389-7 (Version None)
Quarter: 2012Q3

REPORT INFORMATION
  Report Type: 
  Country: None (occurrence: None)
  Receive Date: 20120730
  Receipt Date: 20120717
  Transmission Date: 20120928
  Serious: Yes (Disabling, Other)
  Sender: FDA-Public Use
  Company Number: JP-FRI-1000037301

PATIENT
  Sex: Male

DRUGS (7)
  1. VITAMIN B12 [Concomitant]
     Dosage: 1500 UG
     Route: 048
     Dates: start: 20120412
  2. MEMANTINE HCL [Suspect]
     Indication: DEMENTIA ALZHEIMER'S TYPE
     Dosage: 5 MG
     Route: 048
     Dates: start: 20120607, end: 20120613
  3. SENNOSIDE [Concomitant]
     Route: 048
     Dates: start: 20120627
  4. MEMANTINE HCL [Suspect]
     Dosage: 15 MG
     Route: 048
     Dates: start: 20120621, end: 20120627
  5. FOLIC ACID [Concomitant]
     Dosage: 15 MG
     Route: 048
     Dates: start: 20120412
  6. MEMANTINE HCL [Suspect]
     Dosage: 10 MG
     Route: 048
     Dates: start: 20120614, end: 20120620
  7. DONEPEZIL HCL [Concomitant]

REACTIONS (3)
  - CONSTIPATION [None]
  - BLOOD BILIRUBIN INCREASED [None]
  - SOMNOLENCE [None]
